FAERS Safety Report 10081186 (Version 1)
Quarter: 2014Q2

REPORT INFORMATION
  Report Type: Spontaneous
  Country: US (occurrence: None)
  Receive Date: 20140415
  Receipt Date: 20140415
  Transmission Date: 20141212
  Serious: Yes (Other)
  Sender: FDA-Public Use
  Company Number: None

PATIENT
  Sex: Female
  Weight: 71.22 kg

DRUGS (1)
  1. CHOLECALCIFEROL CAPSULE [Suspect]
     Indication: VITAMIN D DECREASED
     Dosage: 1 CAP WK; 1 EACH WK
     Dates: start: 20130106

REACTIONS (5)
  - Arthropathy [None]
  - Contusion [None]
  - Burning sensation [None]
  - Musculoskeletal pain [None]
  - Product label issue [None]
